FAERS Safety Report 17319609 (Version 1)
Quarter: 2020Q1

REPORT INFORMATION
  Report Type: Report from Study
  Country: None (occurrence: NL)
  Receive Date: 20200125
  Receipt Date: 20200125
  Transmission Date: 20200409
  Serious: Yes (Hospitalization)
  Sender: FDA-Public Use
  Company Number: NL-ABBVIE-20K-114-3246546-00

PATIENT
  Sex: Female

DRUGS (2)
  1. MACROGOL [Concomitant]
     Active Substance: POLYETHYLENE GLYCOLS
     Indication: ABNORMAL FAECES
  2. DUODOPA [Suspect]
     Active Substance: CARBIDOPA\LEVODOPA
     Indication: PARKINSON^S DISEASE
     Dosage: MD 4.6 CD 4.2 ED 4.0
     Route: 050
     Dates: start: 20190520

REACTIONS (3)
  - Cognitive disorder [Not Recovered/Not Resolved]
  - Somatic symptom disorder [Not Recovered/Not Resolved]
  - Unevaluable event [Not Recovered/Not Resolved]
